FAERS Safety Report 8984311 (Version 5)
Quarter: 2013Q4

REPORT INFORMATION
  Report Type: Report from Study
  Country: US (occurrence: US)
  Receive Date: 20121226
  Receipt Date: 20131119
  Transmission Date: 20140711
  Serious: Yes (Hospitalization)
  Sender: FDA-Public Use
  Company Number: US-VERTEX PHARMACEUTICALS INC.-2012-026273

PATIENT
  Age: 52 Year
  Sex: Male
  Weight: 73 kg

DRUGS (9)
  1. VX-950 (TELAPREVIR) [Suspect]
     Indication: HEPATITIS C
     Dosage: 750 MG, TID
     Route: 048
     Dates: start: 201210, end: 201212
  2. VX-950 (TELAPREVIR) [Suspect]
     Dosage: 750 MG, TID
     Dates: start: 20130730
  3. PEGASYS [Suspect]
     Indication: HEPATITIS C
     Dosage: 180 ?G, QW
     Route: 058
     Dates: start: 201210, end: 201212
  4. PEGASYS [Suspect]
     Dosage: 180 ?G, QW
     Route: 058
     Dates: start: 20130730
  5. RIBAVIRIN [Suspect]
     Indication: HEPATITIS C
     Dosage: 1000 MG, QD
     Route: 048
     Dates: start: 201210, end: 201212
  6. RIBAVIRIN [Suspect]
     Dosage: 400MG AM, 600 MG PM
     Route: 048
     Dates: start: 20130730
  7. AMLODIPINE [Concomitant]
     Dosage: 10 MG, UNK
  8. CELEBREX [Concomitant]
     Dosage: UNK, PRN
  9. AMLODIPINE [Concomitant]
     Indication: BLOOD PRESSURE

REACTIONS (5)
  - Meningitis [Recovered/Resolved]
  - Confusional state [Recovered/Resolved]
  - Disorientation [Recovered/Resolved]
  - Drug dose omission [Unknown]
  - Drug ineffective [Unknown]
